FAERS Safety Report 5331416-7 (Version None)
Quarter: 2007Q2

REPORT INFORMATION
  Report Type: 
  Country: None (occurrence: None)
  Receive Date: 20070522
  Receipt Date: 20070507
  Transmission Date: 20071010
  Serious: Yes (Other)
  Sender: FDA-Public Use
  Company Number: GR-GENENTECH-241245

PATIENT
  Sex: Female

DRUGS (2)
  1. HERCEPTIN [Suspect]
     Indication: BREAST CANCER METASTATIC
  2. CARBOPLATIN [Concomitant]
     Indication: BREAST CANCER METASTATIC

REACTIONS (3)
  - PALPITATIONS [None]
  - RIGHT VENTRICULAR FAILURE [None]
  - TRANSAMINASES INCREASED [None]
